FAERS Safety Report 21479920 (Version 2)
Quarter: 2022Q4

REPORT INFORMATION
  Report Type: Spontaneous
  Country: US (occurrence: US)
  Receive Date: 20221019
  Receipt Date: 20221215
  Transmission Date: 20230113
  Serious: Yes (Other)
  Sender: FDA-Public Use
  Company Number: US-MYLANLABS-2022M1113359

PATIENT
  Age: 54 Year
  Sex: Female
  Weight: 58.9 kg

DRUGS (2)
  1. EPIPEN [Suspect]
     Active Substance: EPINEPHRINE
     Indication: Hypersensitivity
     Dosage: 0.3 MILLIGRAM
     Route: 030
  2. BENADRYL [Concomitant]
     Active Substance: DIPHENHYDRAMINE HYDROCHLORIDE
     Indication: Hypersensitivity
     Dosage: UNK
     Route: 065

REACTIONS (1)
  - Device failure [Unknown]

NARRATIVE: CASE EVENT DATE: 20221003
